FAERS Safety Report 21319179 (Version 1)
Quarter: 2022Q3

REPORT INFORMATION
  Report Type: Spontaneous
  Country: US (occurrence: US)
  Receive Date: 20220911
  Receipt Date: 20220911
  Transmission Date: 20221026
  Serious: No
  Sender: FDA-Public Use
  Company Number: US-SA-SAC20220905000094

PATIENT
  Sex: Female

DRUGS (13)
  1. AUBAGIO [Suspect]
     Active Substance: TERIFLUNOMIDE
     Indication: Multiple sclerosis
     Dosage: 1 DF QD
     Route: 048
  2. LOSARTAN [Concomitant]
     Active Substance: LOSARTAN
  3. ATORVASTATIN [Concomitant]
     Active Substance: ATORVASTATIN
  4. BUSPIRONE [Concomitant]
     Active Substance: BUSPIRONE HYDROCHLORIDE
  5. GABAPENTIN [Concomitant]
     Active Substance: GABAPENTIN
  6. PLAQUENIL [Concomitant]
     Active Substance: HYDROXYCHLOROQUINE SULFATE
  7. ATENOLOL [Concomitant]
     Active Substance: ATENOLOL
  8. TOPAMAX [Concomitant]
     Active Substance: TOPIRAMATE
  9. LISINOPRIL [Concomitant]
     Active Substance: LISINOPRIL
  10. PREDNISONE [Concomitant]
     Active Substance: PREDNISONE
     Dosage: 75MG
  11. AMITRIPTYLINE HYDROCHLORIDE [Concomitant]
     Active Substance: AMITRIPTYLINE HYDROCHLORIDE
     Dosage: 75MG
  12. SERTRALINE [Concomitant]
     Active Substance: SERTRALINE HYDROCHLORIDE
     Dosage: 200MG
  13. ZOLOFT [Concomitant]
     Active Substance: SERTRALINE HYDROCHLORIDE

REACTIONS (11)
  - Visual impairment [Unknown]
  - Fatigue [Unknown]
  - Depression [Unknown]
  - Memory impairment [Unknown]
  - Disturbance in attention [Unknown]
  - Movement disorder [Unknown]
  - Aphasia [Unknown]
  - Foot fracture [Unknown]
  - Pain in extremity [Unknown]
  - Paraesthesia [Unknown]
  - Hypoaesthesia [Unknown]
